FAERS Safety Report 8496131-X (Version None)
Quarter: 2012Q3

REPORT INFORMATION
  Report Type: 
  Country: None (occurrence: None)
  Receive Date: 20120709
  Receipt Date: 20120705
  Transmission Date: 20120928
  Serious: Yes (Death, Hospitalization)
  Sender: FDA-Public Use
  Company Number: ES-JNJFOC-20120309306

PATIENT
  Age: 80 Year
  Sex: Male

DRUGS (2)
  1. PREDNISONE [Concomitant]
     Indication: PROSTATE CANCER
     Route: 065
     Dates: start: 20120201, end: 20120301
  2. ZYTIGA [Suspect]
     Indication: PROSTATE CANCER
     Route: 048
     Dates: start: 20120201, end: 20120301

REACTIONS (6)
  - BONE MARROW DISORDER [None]
  - DISEASE PROGRESSION [None]
  - LIVER DISORDER [None]
  - INFECTION [None]
  - THROMBOCYTOPENIA [None]
  - COAGULATION FACTOR DECREASED [None]
